FAERS Safety Report 6428059-0 (Version None)
Quarter: 2009Q4

REPORT INFORMATION
  Report Type: 
  Country: None (occurrence: None)
  Receive Date: 20091105
  Receipt Date: 20091102
  Transmission Date: 20100525
  Serious: Yes (Death)
  Sender: FDA-Public Use
  Company Number: RU-ROCHE-666196

PATIENT
  Age: 69 Year
  Sex: Male

DRUGS (5)
  1. XELODA [Suspect]
     Indication: DRUG USE FOR UNKNOWN INDICATION
     Route: 048
  2. HERCEPTIN [Concomitant]
  3. ATENOLOL [Concomitant]
  4. MONOPRIL [Concomitant]
  5. OMNIC [Concomitant]

REACTIONS (1)
  - CARDIAC FAILURE [None]
